FAERS Safety Report 21848743 (Version 2)
Quarter: 2024Q1

REPORT INFORMATION
  Report Type: Report from Study
  Country: PH (occurrence: PH)
  Receive Date: 20230111
  Receipt Date: 20240201
  Transmission Date: 20240410
  Serious: Yes (Death, Other)
  Sender: FDA-Public Use
  Company Number: PH-002147023-NVSC2023PH005785

PATIENT
  Age: 54 Year
  Sex: Female

DRUGS (2)
  1. TASIGNA [Suspect]
     Active Substance: NILOTINIB
     Indication: Chronic myeloid leukaemia
     Dosage: 2 DOSAGE FORM, Q12H (NO FOOD 2 HRS BEFORE TO 1 HR AFTER INTAKE)
     Route: 048
     Dates: start: 20220109
  2. AZITHROMYCIN [Concomitant]
     Active Substance: AZITHROMYCIN
     Indication: Pneumonia
     Dosage: 500 MG, QD, (5 DAYS)
     Route: 065

REACTIONS (5)
  - Subdural haemorrhage [Fatal]
  - Brain herniation [Fatal]
  - Subdural effusion [Fatal]
  - Chronic myeloid leukaemia transformation [Unknown]
  - White blood cell count increased [Unknown]

NARRATIVE: CASE EVENT DATE: 20220801
